FAERS Safety Report 21619401 (Version 3)
Quarter: 2022Q4

REPORT INFORMATION
  Report Type: Spontaneous
  Country: JP (occurrence: None)
  Receive Date: 20221120
  Receipt Date: 20221220
  Transmission Date: 20230113
  Serious: Yes (Hospitalization)
  Sender: FDA-Public Use
  Company Number: JP-Orion Corporation ORION PHARMA-ENT 2022-0098

PATIENT
  Age: 84 Year
  Sex: Female

DRUGS (3)
  1. COMTAN [Suspect]
     Active Substance: ENTACAPONE
     Indication: Parkinson^s disease
     Route: 048
  2. BENSERAZIDE HYDROCHLORIDE\LEVODOPA [Concomitant]
     Active Substance: BENSERAZIDE HYDROCHLORIDE\LEVODOPA
     Route: 065
  3. NEUPRO [Concomitant]
     Active Substance: ROTIGOTINE
     Route: 062

REACTIONS (3)
  - Cholangitis [Recovered/Resolved]
  - Off label use [Unknown]
  - Dysphagia [Unknown]
